FAERS Safety Report 14191184 (Version 1)
Quarter: 2017Q4

REPORT INFORMATION
  Report Type: Spontaneous
  Country: US (occurrence: US)
  Receive Date: 20171115
  Receipt Date: 20171115
  Transmission Date: 20180321
  Serious: No
  Sender: FDA-Public Use
  Company Number: US-ELI_LILLY_AND_COMPANY-US201711004725

PATIENT
  Sex: Female

DRUGS (1)
  1. FORTEO [Suspect]
     Active Substance: TERIPARATIDE
     Indication: OSTEOPOROSIS
     Dosage: 20 UG, UNKNOWN
     Route: 065
     Dates: start: 20171019

REACTIONS (6)
  - Sjogren^s syndrome [Unknown]
  - Abdominal pain [Unknown]
  - Pain in extremity [Unknown]
  - Throat irritation [Unknown]
  - Fatigue [Unknown]
  - Dermatitis [Unknown]

NARRATIVE: CASE EVENT DATE: 20171020
